FAERS Safety Report 7789953-1 (Version None)
Quarter: 2011Q3

REPORT INFORMATION
  Report Type: 
  Country: None (occurrence: None)
  Receive Date: 20110930
  Receipt Date: 20100902
  Transmission Date: 20111222
  Serious: No
  Sender: FDA-Public Use
  Company Number: US-ASTRAZENECA-2010SE38934

PATIENT
  Age: 28115 Day
  Sex: Female

DRUGS (1)
  1. ARIMIDEX [Suspect]
     Route: 048
     Dates: start: 20080101

REACTIONS (3)
  - HOT FLUSH [None]
  - DRUG DOSE OMISSION [None]
  - BURNING SENSATION [None]
